FAERS Safety Report 9434614 (Version 1)
Quarter: 2013Q3

REPORT INFORMATION
  Report Type: Spontaneous
  Country: RU (occurrence: RU)
  Receive Date: 20130801
  Receipt Date: 20130801
  Transmission Date: 20140515
  Serious: Yes (Other)
  Sender: FDA-Public Use
  Company Number: RU-BAYER-2013-090122

PATIENT
  Age: 40 Year
  Sex: Female

DRUGS (1)
  1. YARINA [Suspect]
     Dosage: UNK
     Dates: start: 2005

REACTIONS (4)
  - Cervical leukoplakia [Recovered/Resolved]
  - Vulval leukoplakia [Not Recovered/Not Resolved]
  - Cyst [None]
  - Polyp [None]
